FAERS Safety Report 5152213-1 (Version None)
Quarter: 2006Q4

REPORT INFORMATION
  Report Type: 
  Country: None (occurrence: None)
  Receive Date: 20061109
  Receipt Date: 20061025
  Transmission Date: 20070319
  Serious: Yes (Hospitalization)
  Sender: FDA-Public Use
  Company Number: 2006SP001511

PATIENT
  Age: 57 Year
  Sex: Male
  Weight: 76 kg

DRUGS (5)
  1. PEG-INTRON [Suspect]
     Indication: HEPATITIS C
     Dosage: 100 MCG;QW; SC, 100 MCG QW; SC
     Route: 058
     Dates: start: 20051017, end: 20060207
  2. PEG-INTRON [Suspect]
     Indication: HEPATITIS C
     Dosage: 100 MCG;QW; SC, 100 MCG QW; SC
     Route: 058
     Dates: start: 20060704
  3. REBETOL [Suspect]
     Indication: HEPATITIS C
     Dosage: 800 MG, QD' PO, 600 MG, QD; PO, 800 MG, QD; PO
     Route: 048
     Dates: start: 20051017, end: 20051107
  4. REBETOL [Suspect]
     Indication: HEPATITIS C
     Dosage: 800 MG, QD' PO, 600 MG, QD; PO, 800 MG, QD; PO
     Route: 048
     Dates: start: 20051108, end: 20060214
  5. REBETOL [Suspect]
     Indication: HEPATITIS C
     Dosage: 800 MG, QD' PO, 600 MG, QD; PO, 800 MG, QD; PO
     Route: 048
     Dates: start: 20060704

REACTIONS (5)
  - ABSCESS [None]
  - C-REACTIVE PROTEIN INCREASED [None]
  - HAEMOLYSIS [None]
  - INFECTIVE SPONDYLITIS [None]
  - INTERCOSTAL NEURALGIA [None]
